FAERS Safety Report 4997885-7 (Version None)
Quarter: 2006Q2

REPORT INFORMATION
  Report Type: 
  Country: None (occurrence: None)
  Receive Date: 20060510
  Receipt Date: 20060124
  Transmission Date: 20061013
  Serious: Yes (Other)
  Sender: FDA-Public Use
  Company Number: US-AVENTIS-200610980US

PATIENT
  Sex: Female
  Weight: 162 kg

DRUGS (16)
  1. KETEK [Suspect]
     Indication: SINUSITIS
     Route: 048
     Dates: start: 20060105, end: 20060105
  2. KALETRA [Concomitant]
     Dosage: DOSE: 4 CAPSULES
     Route: 048
  3. HIVID [Concomitant]
     Dosage: DOSE: UNK
  4. LOPINAVIR [Concomitant]
     Dosage: DOSE: UNK
  5. DAPSONE [Concomitant]
  6. SUSTIVA [Concomitant]
  7. MOTRIN [Concomitant]
     Route: 048
  8. ZALCITABINE [Concomitant]
     Route: 048
  9. ZOLOFT [Concomitant]
     Route: 048
  10. GARLIC [Concomitant]
     Dosage: DOSE: UNK
  11. AMBIEN [Concomitant]
     Route: 048
  12. GRAPE SEED [Concomitant]
     Dosage: DOSE: UNK
  13. MEDROXYPR AC [Concomitant]
     Dosage: DOSE: UNK
  14. CENESTIN [Concomitant]
     Dosage: DOSE: UNK
  15. CEPHALEXIN [Concomitant]
     Dosage: DOSE: UNK
  16. METRONIDAZOLE [Concomitant]
     Dosage: DOSE: UNK

REACTIONS (4)
  - APHASIA [None]
  - FATIGUE [None]
  - MYASTHENIA GRAVIS [None]
  - PARALYSIS [None]
